FAERS Safety Report 4767155-0 (Version None)
Quarter: 2005Q3

REPORT INFORMATION
  Report Type: 
  Country: None (occurrence: None)
  Receive Date: 20050906
  Receipt Date: 20050831
  Transmission Date: 20060218
  Serious: Yes (Life-Threatening, Hospitalization)
  Sender: FDA-Public Use
  Company Number: 05-08-1496

PATIENT
  Sex: Female

DRUGS (8)
  1. FUROSEMIDE [Suspect]
  2. LOSARTAN POTASSIUM [Suspect]
  3. DICLOFENAC (DICLOFENAC) [Suspect]
  4. OMEPRAZOLE [Concomitant]
  5. AMINOPHYLLIN [Concomitant]
  6. SYMBICORT (BUDESONIDE W/FORMOTEROL FUMARATE) [Concomitant]
  7. COMBIVENT [Concomitant]
  8. TRAMADOL HCL [Concomitant]

REACTIONS (2)
  - METABOLIC ACIDOSIS [None]
  - RENAL FAILURE [None]
